FAERS Safety Report 7380510-8 (Version None)
Quarter: 2011Q1

REPORT INFORMATION
  Report Type: 
  Country: None (occurrence: None)
  Receive Date: 20110321
  Receipt Date: 20110310
  Transmission Date: 20110831
  Serious: Yes (Hospitalization)
  Sender: FDA-Public Use
  Company Number: 029113

PATIENT
  Sex: Male
  Weight: 103.8737 kg

DRUGS (3)
  1. CIMZIA [Suspect]
     Indication: RHEUMATOID ARTHRITIS
     Dosage: 400 MG 1X2 WEEKS, SUBCUTANEOUS
     Route: 058
  2. NAPROXEN [Concomitant]
  3. METFORMIN [Concomitant]

REACTIONS (1)
  - HAEMORRHAGE [None]
